FAERS Safety Report 7038472-9 (Version None)
Quarter: 2010Q4

REPORT INFORMATION
  Report Type: 
  Country: None (occurrence: None)
  Receive Date: 20101011
  Receipt Date: 20100407
  Transmission Date: 20110411
  Serious: No
  Sender: FDA-Public Use
  Company Number: US-PFIZER INC-2010044439

PATIENT
  Sex: Female
  Weight: 84.354 kg

DRUGS (10)
  1. GABAPENTIN [Suspect]
     Indication: SPINAL COLUMN STENOSIS
     Dosage: 100 MG, DAILY
     Route: 048
     Dates: start: 20100301
  2. DEXTROAMPETAMINE SULFATE TAB [Concomitant]
     Indication: NARCOLEPSY
     Dosage: 5 MG, DAILY
     Route: 048
  3. OXYCODONE [Concomitant]
     Indication: PAIN
     Dosage: 20 MG, 2X/DAY
     Route: 048
  4. HYDROCODONE [Concomitant]
     Indication: PAIN
     Dosage: 500 MG, EVERY 4 HRS
     Route: 048
  5. FISH OIL [Concomitant]
     Dosage: UNK, DAILY
     Route: 048
  6. VITAMIN D [Concomitant]
     Indication: PRURITUS
     Dosage: 1000 IU, DAILY
     Route: 048
  7. PREMARIN [Concomitant]
     Dosage: 3X/WEEKLY
  8. ASCORBIC ACID [Concomitant]
     Dosage: 100 MG, 2X/DAY
     Route: 048
  9. GARLIC [Concomitant]
     Dosage: 1000 MG, 2X/DAY
     Route: 048
  10. LUTEIN [Concomitant]
     Dosage: 20 MG, DAILY
     Route: 048

REACTIONS (2)
  - FATIGUE [None]
  - SOMNOLENCE [None]
